FAERS Safety Report 14649754 (Version 1)
Quarter: 2018Q1

REPORT INFORMATION
  Report Type: Spontaneous
  Country: LT (occurrence: LT)
  Receive Date: 20180316
  Receipt Date: 20180316
  Transmission Date: 20180509
  Serious: Yes (Hospitalization)
  Sender: FDA-Public Use
  Company Number: LT-ASTRAZENECA-2018SE30031

PATIENT
  Age: 39 Year
  Sex: Female
  Weight: 65 kg

DRUGS (2)
  1. DIAZEPAM. [Concomitant]
     Active Substance: DIAZEPAM
     Dosage: 100.0MG UNKNOWN
     Route: 048
     Dates: start: 20180203, end: 20180203
  2. QUETIAPINE. [Suspect]
     Active Substance: QUETIAPINE
     Dosage: 750.0MG UNKNOWN
     Route: 048
     Dates: start: 20180203, end: 20180203

REACTIONS (4)
  - Sluggishness [Recovering/Resolving]
  - Somnolence [Recovering/Resolving]
  - Disorientation [Recovering/Resolving]
  - Suicide attempt [Recovering/Resolving]

NARRATIVE: CASE EVENT DATE: 20180203
